FAERS Safety Report 26050369 (Version 1)
Quarter: 2025Q4

REPORT INFORMATION
  Report Type: Spontaneous
  Country: US (occurrence: US)
  Receive Date: 20251116
  Receipt Date: 20251116
  Transmission Date: 20260117
  Serious: Yes (Life-Threatening, Hospitalization, Other)
  Sender: OXFORD PHARMACEUTICALS, LLC
  Company Number: US-Oxford Pharmaceuticals, LLC-2188652

PATIENT
  Age: 34 Year
  Sex: Male

DRUGS (1)
  1. LEVETIRACETAM [Suspect]
     Active Substance: LEVETIRACETAM
     Indication: Generalised tonic-clonic seizure

REACTIONS (1)
  - Rhabdomyolysis [Recovered/Resolved]
